FAERS Safety Report 12207626 (Version 2)
Quarter: 2016Q2

REPORT INFORMATION
  Report Type: Report from Study
  Country: US (occurrence: US)
  Receive Date: 20160324
  Receipt Date: 20160401
  Transmission Date: 20160815
  Serious: Yes (Hospitalization)
  Sender: FDA-Public Use
  Company Number: US-BAYER-2016-025136

PATIENT
  Age: 57 Year
  Sex: Female
  Weight: 113.83 kg

DRUGS (4)
  1. LETAIRIS [Concomitant]
     Active Substance: AMBRISENTAN
  2. ADEMPAS [Suspect]
     Active Substance: RIOCIGUAT
     Indication: PULMONARY ARTERIAL HYPERTENSION
     Dosage: UNK
     Dates: start: 20151028
  3. ADEMPAS [Suspect]
     Active Substance: RIOCIGUAT
     Indication: PULMONARY ARTERIAL HYPERTENSION
     Dosage: 2.5 MG, TID
     Route: 048
  4. ADEMPAS [Suspect]
     Active Substance: RIOCIGUAT
     Indication: PULMONARY ARTERIAL HYPERTENSION
     Dosage: 2 MG, TID
     Route: 048

REACTIONS (14)
  - Oedema [Unknown]
  - Haemoglobin decreased [Unknown]
  - Atrioventricular block complete [Unknown]
  - Hospitalisation [Not Recovered/Not Resolved]
  - Dialysis [Unknown]
  - Pain in extremity [Unknown]
  - Vomiting [Unknown]
  - Dyspnoea [Unknown]
  - Oedema peripheral [Unknown]
  - Nausea [Unknown]
  - Fatigue [Unknown]
  - Tremor [Unknown]
  - Sinus node dysfunction [Unknown]
  - Headache [Unknown]
